FAERS Safety Report 25202376 (Version 1)
Quarter: 2025Q2

REPORT INFORMATION
  Report Type: Spontaneous
  Country: DE (occurrence: DE)
  Receive Date: 20250416
  Receipt Date: 20250416
  Transmission Date: 20250717
  Serious: Yes (Hospitalization, Other)
  Sender: SANDOZ
  Company Number: DE-AstraZeneca-2023A167991

PATIENT
  Age: 61 Year
  Sex: Male
  Weight: 74 kg

DRUGS (1)
  1. BUDESONIDE\FORMOTEROL [Suspect]
     Active Substance: BUDESONIDE\FORMOTEROL
     Indication: Product used for unknown indication
     Route: 055

REACTIONS (7)
  - Chronic obstructive pulmonary disease [Unknown]
  - Blood immunoglobulin E increased [Unknown]
  - Fractional exhaled nitric oxide increased [Unknown]
  - Pulmonary function test abnormal [Unknown]
  - Lower respiratory tract infection [Unknown]
  - Hyponatraemia [Unknown]
  - Chronic respiratory failure [Unknown]
